FAERS Safety Report 20966059 (Version 1)
Quarter: 2022Q2

REPORT INFORMATION
  Report Type: Report from Study
  Country: US (occurrence: US)
  Receive Date: 20220616
  Receipt Date: 20220616
  Transmission Date: 20220720
  Serious: Yes (Other)
  Sender: FDA-Public Use
  Company Number: US-BRISTOL-MYERS SQUIBB COMPANY-2022-055234

PATIENT
  Age: 79 Year
  Sex: Female
  Weight: 63.5 kg

DRUGS (3)
  1. ELIQUIS [Suspect]
     Active Substance: APIXABAN
     Indication: Pulmonary embolism
     Dosage: DOSE : UNAVAILABLE;     FREQ : TWICE DAILY
  2. ELIQUIS [Suspect]
     Active Substance: APIXABAN
     Indication: Atrial tachycardia
  3. ELIQUIS [Suspect]
     Active Substance: APIXABAN
     Indication: Thrombocytosis

REACTIONS (4)
  - Atrial tachycardia [Unknown]
  - Asthenia [Unknown]
  - Blood pressure decreased [Unknown]
  - Weight decreased [Unknown]
